FAERS Safety Report 14434492 (Version 1)
Quarter: 2018Q1

REPORT INFORMATION
  Report Type: Spontaneous
  Country: US (occurrence: US)
  Receive Date: 20180124
  Receipt Date: 20180124
  Transmission Date: 20180509
  Serious: Yes (Other)
  Sender: FDA-Public Use
  Company Number: US-STANDARD HOMEOPATHIC COMPANY-2040748

PATIENT
  Age: 13 Month
  Sex: Female

DRUGS (1)
  1. HYLAND^S BABY NIGHTTIME TINY COLD SYRUP [Suspect]
     Active Substance: HOMEOPATHICS
     Indication: RHINORRHOEA
     Route: 048
     Dates: start: 20180110, end: 20180110

REACTIONS (4)
  - Dyspnoea [None]
  - Muscle twitching [None]
  - Heart rate increased [None]
  - Pyrexia [None]

NARRATIVE: CASE EVENT DATE: 20180110
